FAERS Safety Report 16889942 (Version 1)
Quarter: 2019Q4

REPORT INFORMATION
  Report Type: Spontaneous
  Country: US (occurrence: US)
  Receive Date: 20191002
  Receipt Date: 20191002
  Transmission Date: 20200122
  Serious: Yes (Other)
  Sender: FDA-Public Use
  Company Number: None

PATIENT
  Sex: Male

DRUGS (1)
  1. PHELANTIN [Suspect]
     Active Substance: METHAMPHETAMINE\PHENOBARBITAL\PHENYTOIN

REACTIONS (2)
  - Therapy non-responder [None]
  - Seizure [None]
